FAERS Safety Report 7536555-8 (Version None)
Quarter: 2011Q2

REPORT INFORMATION
  Report Type: 
  Country: None (occurrence: None)
  Receive Date: 20110602
  Receipt Date: 20110523
  Transmission Date: 20111010
  Serious: Yes (Hospitalization)
  Sender: FDA-Public Use
  Company Number: 2011SP007601

PATIENT
  Age: 30 Year
  Sex: Female

DRUGS (3)
  1. FOLLISTIM AQ [Suspect]
     Indication: PRODUCT USED FOR UNKNOWN INDICATION
     Dosage: 75 IU
     Dates: start: 20101201, end: 20101218
  2. CLOMID [Concomitant]
  3. CHORIONIC GONADOTROPIN [Concomitant]

REACTIONS (12)
  - ENDOMETRIOSIS [None]
  - OVARIAN HYPERSTIMULATION SYNDROME [None]
  - NECROSIS [None]
  - HAEMORRHAGIC OVARIAN CYST [None]
  - INFLAMMATION [None]
  - OVARIAN TORSION [None]
  - SALPINGITIS [None]
  - OVARIAN NECROSIS [None]
  - POLYCYSTIC OVARIES [None]
  - ADHESION [None]
  - PULMONARY EMBOLISM [None]
  - BLOOD HUMAN CHORIONIC GONADOTROPIN NEGATIVE [None]
